FAERS Safety Report 11250369 (Version 1)
Quarter: 2015Q3

REPORT INFORMATION
  Report Type: Spontaneous
  Country: US (occurrence: US)
  Receive Date: 20150708
  Receipt Date: 20150708
  Transmission Date: 20151125
  Serious: Yes (Death)
  Sender: FDA-Public Use
  Company Number: US-ELI_LILLY_AND_COMPANY-US200811002236

PATIENT
  Age: 49 Year
  Sex: Female

DRUGS (2)
  1. XIGRIS [Suspect]
     Active Substance: DROTRECOGIN ALFA (ACTIVATED)
     Indication: ENDOCARDITIS
     Dosage: UNK,
     Dates: start: 200810, end: 200810
  2. OXYGEN. [Concomitant]
     Active Substance: OXYGEN
     Dates: start: 200810, end: 200810

REACTIONS (1)
  - Haemorrhage intracranial [Fatal]

NARRATIVE: CASE EVENT DATE: 20081012
